FAERS Safety Report 25680030 (Version 1)
Quarter: 2025Q3

REPORT INFORMATION
  Report Type: Other
  Country: GB (occurrence: GB)
  Receive Date: 20250814
  Receipt Date: 20250814
  Transmission Date: 20251021
  Serious: Yes (Other)
  Sender: IPCA
  Company Number: None

PATIENT

DRUGS (11)
  1. FUROSEMIDE [Suspect]
     Active Substance: FUROSEMIDE
     Indication: Adverse drug reaction
     Route: 065
  2. ATORVASTATIN [Concomitant]
     Active Substance: ATORVASTATIN
     Indication: Coronary artery disease
     Route: 065
     Dates: start: 20161106
  3. BISOPROLOL [Concomitant]
     Active Substance: BISOPROLOL
     Indication: Heart rate
     Route: 065
     Dates: start: 20170901
  4. RIVAROXABAN [Concomitant]
     Active Substance: RIVAROXABAN
     Indication: Adverse drug reaction
     Route: 065
     Dates: start: 2017
  5. CLOPIDOGREL [Concomitant]
     Active Substance: CLOPIDOGREL BISULFATE
     Indication: Cardiovascular disorder
     Route: 065
     Dates: start: 2022
  6. FAMOTIDINE [Concomitant]
     Active Substance: FAMOTIDINE
     Indication: Adverse drug reaction
     Route: 065
     Dates: start: 2022
  7. ISOSORBIDE MONONITRATE [Concomitant]
     Active Substance: ISOSORBIDE MONONITRATE
     Indication: Cardiovascular disorder
     Route: 065
     Dates: start: 2019
  8. PREGABALIN [Concomitant]
     Active Substance: PREGABALIN
     Indication: Axial spondyloarthritis
     Route: 065
     Dates: start: 2017
  9. RANOLAZINE [Concomitant]
     Active Substance: RANOLAZINE
     Indication: Cardiovascular disorder
     Route: 065
     Dates: start: 2019
  10. LOSARTAN [Concomitant]
     Active Substance: LOSARTAN
     Indication: Adverse drug reaction
     Route: 065
  11. ETANERCEPT [Concomitant]
     Active Substance: ETANERCEPT
     Indication: Axial spondyloarthritis
     Route: 065
     Dates: start: 2017

REACTIONS (1)
  - Epistaxis [Not Recovered/Not Resolved]

NARRATIVE: CASE EVENT DATE: 20250729
